FAERS Safety Report 14570325 (Version 1)
Quarter: 2018Q1

REPORT INFORMATION
  Report Type: Spontaneous
  Country: FR (occurrence: FR)
  Receive Date: 20180226
  Receipt Date: 20180226
  Transmission Date: 20180509
  Serious: Yes (Hospitalization)
  Sender: FDA-Public Use
  Company Number: FR-SUN PHARMACEUTICAL INDUSTRIES LTD-2018R1-164143

PATIENT
  Age: 91 Year
  Sex: Male

DRUGS (7)
  1. AMLODIPINE [Concomitant]
     Active Substance: AMLODIPINE BESYLATE
     Indication: TRANSIENT ISCHAEMIC ATTACK
     Dosage: 5 MG, DAILY
     Route: 048
     Dates: start: 201609
  2. RABEPRAZOLE [Suspect]
     Active Substance: RABEPRAZOLE
     Indication: HIATUS HERNIA
     Dosage: 10 MG, DAILY
     Route: 048
     Dates: start: 20161125, end: 20170330
  3. KARDEGIC [Concomitant]
     Active Substance: ASPIRIN DL-LYSINE
     Indication: TRANSIENT ISCHAEMIC ATTACK
     Dosage: 75 MG, DAILY
     Route: 048
     Dates: start: 201609
  4. ESOMEPRAZOLE [Suspect]
     Active Substance: ESOMEPRAZOLE
     Indication: HIATUS HERNIA
     Dosage: 40 MG, DAILY
     Route: 048
     Dates: start: 20171017, end: 20171222
  5. BISOCE [Concomitant]
     Active Substance: BISOPROLOL
     Indication: TRANSIENT ISCHAEMIC ATTACK
     Dosage: 5 MG, DAILY
     Route: 048
     Dates: start: 201609
  6. PANTOPRAZOL [Suspect]
     Active Substance: PANTOPRAZOLE SODIUM
     Indication: HIATUS HERNIA
     Dosage: 40 MG, DAILY
     Route: 048
     Dates: start: 201609, end: 20161125
  7. PRAVASTATIN. [Concomitant]
     Active Substance: PRAVASTATIN
     Indication: TRANSIENT ISCHAEMIC ATTACK
     Dosage: 20 MG, DAILY
     Route: 048
     Dates: start: 201609

REACTIONS (1)
  - Drug eruption [Recovered/Resolved]

NARRATIVE: CASE EVENT DATE: 201609
